FAERS Safety Report 14119572 (Version 2)
Quarter: 2018Q1

REPORT INFORMATION
  Report Type: Spontaneous
  Country: DE (occurrence: DE)
  Receive Date: 20171024
  Receipt Date: 20180303
  Transmission Date: 20180508
  Serious: Yes (Hospitalization)
  Sender: FDA-Public Use
  Company Number: DE-AUROBINDO-AUR-APL-2017-42118

PATIENT
  Sex: Female

DRUGS (7)
  1. LITHIUM. [Concomitant]
     Active Substance: LITHIUM
     Indication: MAJOR DEPRESSION
     Dosage: UNK
     Dates: start: 2006
  2. SERTRALINE [Suspect]
     Active Substance: SERTRALINE HYDROCHLORIDE
     Indication: MAJOR DEPRESSION
     Dosage: 150 MILLIGRAM
  3. RAMIPRIL. [Concomitant]
     Active Substance: RAMIPRIL
     Indication: HYPERTENSION
     Dosage: 5 MILLIGRAM
  4. VENLAFAXINE [Concomitant]
     Active Substance: VENLAFAXINE HYDROCHLORIDE
     Indication: MAJOR DEPRESSION
     Dosage: UNK
     Dates: start: 2006
  5. BUPROPION. [Suspect]
     Active Substance: BUPROPION
     Indication: MAJOR DEPRESSION
     Dosage: 150 TO 300 MG
  6. MELPERONE [Concomitant]
     Active Substance: MELPERONE
     Indication: MAJOR DEPRESSION
     Dosage: 50 TO 100 MG
  7. DOXEPIN [Suspect]
     Active Substance: DOXEPIN
     Indication: MAJOR DEPRESSION
     Dosage: ONCE OR TWICE A WEEK ()
     Dates: start: 2015, end: 2016

REACTIONS (2)
  - Sleep-related eating disorder [Recovering/Resolving]
  - Condition aggravated [Recovering/Resolving]
